FAERS Safety Report 5837914-1 (Version None)
Quarter: 2008Q3

REPORT INFORMATION
  Report Type: 
  Country: None (occurrence: None)
  Receive Date: 20080808
  Receipt Date: 20080806
  Transmission Date: 20090109
  Serious: Yes (Other)
  Sender: FDA-Public Use
  Company Number: DE-BRISTOL-MYERS SQUIBB COMPANY-14292031

PATIENT
  Age: 60 Year
  Sex: Male

DRUGS (1)
  1. BARACLUDE [Suspect]
     Route: 048

REACTIONS (2)
  - ACIDOSIS [None]
  - RENAL FAILURE [None]
